FAERS Safety Report 10970312 (Version 2)
Quarter: 2015Q2

REPORT INFORMATION
  Report Type: Spontaneous
  Country: US (occurrence: US)
  Receive Date: 20150331
  Receipt Date: 20150416
  Transmission Date: 20150821
  Serious: Yes (Other)
  Sender: FDA-Public Use
  Company Number: US-AMGEN-USASP2015029378

PATIENT
  Age: 66 Year
  Sex: Female
  Weight: 45.81 kg

DRUGS (1)
  1. PROLIA [Suspect]
     Active Substance: DENOSUMAB
     Indication: OSTEOPOROSIS
     Dosage: UNK, Q6MO
     Route: 058
     Dates: start: 20120910

REACTIONS (4)
  - Dizziness [Recovered/Resolved]
  - Upper limb fracture [Unknown]
  - Tooth disorder [Unknown]
  - Cataract [Unknown]

NARRATIVE: CASE EVENT DATE: 20120910
